FAERS Safety Report 7391041 (Version 3)
Quarter: 2012Q4

REPORT INFORMATION
  Report Type: 
  Country: US (occurrence: US)
  Receive Date: 20100518
  Receipt Date: 20121114
  Transmission Date: 20130627
  Serious: Yes (Hospitalization)
  Sender: FDA-Public Use
  Company Number: US-BIOGENIDEC-2010BI016014

PATIENT
  Age: 63 Year
  Sex: Female

DRUGS (2)
  1. AVONEX [Suspect]
     Indication: MULTIPLE SCLEROSIS
     Route: 030
     Dates: start: 20030112, end: 2003
  2. AVONEX [Suspect]
     Indication: MULTIPLE SCLEROSIS
     Route: 030
     Dates: start: 2003

REACTIONS (11)
  - Intervertebral disc protrusion [Recovered/Resolved]
  - Peripheral arterial occlusive disease [Unknown]
  - Cellulitis [Recovered/Resolved]
  - Pain in extremity [Unknown]
  - Injection site haematoma [Recovered/Resolved]
  - Injection site infection [Recovered/Resolved]
  - Device dislocation [Not Recovered/Not Resolved]
  - Loss of control of legs [Unknown]
  - Gait disturbance [Not Recovered/Not Resolved]
  - Mood swings [Unknown]
  - Injection site pain [Recovered/Resolved]
